FAERS Safety Report 24683120 (Version 1)
Quarter: 2024Q4

REPORT INFORMATION
  Report Type: Spontaneous
  Country: US (occurrence: US)
  Receive Date: 20241201
  Receipt Date: 20241201
  Transmission Date: 20250114
  Serious: No
  Sender: SANOFI AVENTIS
  Company Number: US-SA-2024SA348491

PATIENT
  Age: 66 Year
  Sex: Male

DRUGS (2)
  1. DUPIXENT [Suspect]
     Active Substance: DUPILUMAB
     Indication: Dermatitis atopic
     Dosage: 300 MG, EVERY 14 DAYS
     Route: 058
     Dates: start: 202007
  2. DUPIXENT [Suspect]
     Active Substance: DUPILUMAB
     Indication: Urticaria

REACTIONS (3)
  - Dermatitis atopic [Unknown]
  - Rash macular [Unknown]
  - Product use in unapproved indication [Unknown]

NARRATIVE: CASE EVENT DATE: 20200701
